FAERS Safety Report 21130223 (Version 2)
Quarter: 2022Q3

REPORT INFORMATION
  Report Type: Spontaneous
  Country: US (occurrence: US)
  Receive Date: 20220726
  Receipt Date: 20220819
  Transmission Date: 20221026
  Serious: No
  Sender: FDA-Public Use
  Company Number: US-BAUSCH-BL-2022-018029

PATIENT
  Age: 61 Year
  Sex: Female
  Weight: 55.842 kg

DRUGS (5)
  1. EDECRIN [Suspect]
     Active Substance: ETHACRYNIC ACID
     Indication: Lymphatic fistula
     Dosage: 12.5MG UP TO A TABLET AND A HALF AS NEEDED
     Route: 048
  2. EDECRIN [Suspect]
     Active Substance: ETHACRYNIC ACID
     Indication: Product use in unapproved indication
  3. TENORMIN [Concomitant]
     Active Substance: ATENOLOL
     Indication: Product used for unknown indication
     Route: 065
  4. OMEPRAZOLE [Concomitant]
     Active Substance: OMEPRAZOLE
     Indication: Product used for unknown indication
     Route: 048
  5. VYTORIN [Concomitant]
     Active Substance: EZETIMIBE\SIMVASTATIN
     Indication: Product used for unknown indication
     Dosage: 10/10

REACTIONS (5)
  - Throat irritation [Recovered/Resolved]
  - Weight decreased [Unknown]
  - Pollakiuria [Unknown]
  - Drug ineffective for unapproved indication [Unknown]
  - Product use in unapproved indication [Unknown]
